FAERS Safety Report 12307487 (Version 3)
Quarter: 2017Q3

REPORT INFORMATION
  Report Type: Spontaneous
  Country: GB (occurrence: GB)
  Receive Date: 20160426
  Receipt Date: 20170814
  Transmission Date: 20171127
  Serious: Yes (Other)
  Sender: FDA-Public Use
  Company Number: GB-SA-200913061GDDC

PATIENT
  Age: 68 Year
  Sex: Female
  Weight: 45.81 kg

DRUGS (5)
  1. LANTUS [Suspect]
     Active Substance: INSULIN GLARGINE
     Indication: TYPE 1 DIABETES MELLITUS
     Route: 051
  2. LANTUS [Suspect]
     Active Substance: INSULIN GLARGINE
     Indication: TYPE 1 DIABETES MELLITUS
     Dosage: 5 UNITS IN MORNING, 5 UNITS AT NIGHT
     Route: 058
     Dates: start: 20160219
  3. LANTUS [Suspect]
     Active Substance: INSULIN GLARGINE
     Indication: TYPE 1 DIABETES MELLITUS
     Dosage: 6 UNITS IN MORNING, 4 UNITS AT NIGHT
     Route: 058
  4. LANTUS [Suspect]
     Active Substance: INSULIN GLARGINE
     Indication: TYPE 1 DIABETES MELLITUS
     Dosage: 6 UNITS IN MORNING, 5 UNITS AT NIGHT
     Route: 058
     Dates: start: 2015, end: 201602
  5. NOVORAPID [Suspect]
     Active Substance: INSULIN ASPART
     Indication: TYPE 1 DIABETES MELLITUS
     Dosage: IN THE MORNING DOSE:6 UNIT(S)
     Route: 058
     Dates: start: 2015

REACTIONS (8)
  - Migraine [Recovered/Resolved]
  - Hypoglycaemia [Unknown]
  - Lower respiratory tract infection [Unknown]
  - Malaise [Recovered/Resolved]
  - Blood glucose fluctuation [Not Recovered/Not Resolved]
  - Hyperglycaemia [Not Recovered/Not Resolved]
  - Drug administration error [Unknown]
  - Product use issue [Unknown]

NARRATIVE: CASE EVENT DATE: 20090201
